FAERS Safety Report 20595504 (Version 1)
Quarter: 2022Q1

REPORT INFORMATION
  Report Type: Spontaneous
  Country: NZ (occurrence: NZ)
  Receive Date: 20220315
  Receipt Date: 20220315
  Transmission Date: 20220423
  Serious: Yes (Other)
  Sender: FDA-Public Use
  Company Number: NZ-MLMSERVICE-20220302-3409411-1

PATIENT
  Sex: Male

DRUGS (14)
  1. ETOPOSIDE [Suspect]
     Active Substance: ETOPOSIDE
     Indication: High-grade B-cell lymphoma
  2. CYCLOPHOSPHAMIDE [Suspect]
     Active Substance: CYCLOPHOSPHAMIDE
     Indication: High-grade B-cell lymphoma
  3. RITUXIMAB [Suspect]
     Active Substance: RITUXIMAB
     Indication: High-grade B-cell lymphoma
  4. DOXORUBICIN [Suspect]
     Active Substance: DOXORUBICIN
     Indication: High-grade B-cell lymphoma
  5. PREDNISOLONE [Suspect]
     Active Substance: PREDNISOLONE
     Indication: High-grade B-cell lymphoma
  6. VINCRISTINE [Suspect]
     Active Substance: VINCRISTINE
     Indication: High-grade B-cell lymphoma
  7. CLOPIDOGREL [Concomitant]
     Active Substance: CLOPIDOGREL BISULFATE
  8. BISOPROLOL [Concomitant]
     Active Substance: BISOPROLOL
  9. AMLODIPINE [Concomitant]
     Active Substance: AMLODIPINE BESYLATE
  10. ASPIRIN [Concomitant]
     Active Substance: ASPIRIN
     Indication: Back pain
  11. EZETIMIBE [Concomitant]
     Active Substance: EZETIMIBE
  12. METHYLPREDNISOLONE [Concomitant]
     Active Substance: METHYLPREDNISOLONE
     Indication: Metabolic syndrome
     Dosage: HIGH DOSE
  13. QUINAPRIL [Concomitant]
     Active Substance: QUINAPRIL
  14. ATORVASTATIN [Concomitant]
     Active Substance: ATORVASTATIN

REACTIONS (2)
  - Tumour lysis syndrome [Unknown]
  - Small intestinal obstruction [Unknown]
